FAERS Safety Report 24258152 (Version 1)
Quarter: 2024Q3

REPORT INFORMATION
  Report Type: Spontaneous
  Country: US (occurrence: US)
  Receive Date: 20240828
  Receipt Date: 20240828
  Transmission Date: 20241017
  Serious: Yes (Other)
  Sender: CHEPLAPHARM
  Company Number: US-CHEPLA-2024011002

PATIENT
  Sex: Female

DRUGS (4)
  1. HYDROXYUREA [Suspect]
     Active Substance: HYDROXYUREA
     Indication: Product used for unknown indication
  2. JAKAFI [Suspect]
     Active Substance: RUXOLITINIB
     Indication: Polycythaemia vera
     Dosage: DAILY DOSE: 10 MILLIGRAM
     Route: 048
     Dates: start: 2015
  3. JAKAFI [Suspect]
     Active Substance: RUXOLITINIB
     Indication: Polycythaemia vera
     Dosage: DAILY DOSE: 20 MILLIGRAM
     Route: 048
  4. ZYRTEC [Suspect]
     Active Substance: CETIRIZINE HYDROCHLORIDE
     Indication: Aquagenic pruritus

REACTIONS (11)
  - Seizure [Unknown]
  - Myelofibrosis [Unknown]
  - Aquagenic pruritus [Unknown]
  - Feeling abnormal [Unknown]
  - Splenomegaly [Recovered/Resolved]
  - Peripheral swelling [Unknown]
  - Pica [Unknown]
  - Blood iron decreased [Unknown]
  - Disease progression [Unknown]
  - Platelet count decreased [Unknown]
  - Increased tendency to bruise [Unknown]

NARRATIVE: CASE EVENT DATE: 20200101
